FAERS Safety Report 4365584-0 (Version None)
Quarter: 2004Q2

REPORT INFORMATION
  Report Type: 
  Country: None (occurrence: None)
  Receive Date: 20040526
  Receipt Date: 20040526
  Transmission Date: 20050107
  Serious: Yes (Hospitalization)
  Sender: FDA-Public Use
  Company Number: GB-BRISTOL-MYERS SQUIBB COMPANY-12596144

PATIENT
  Age: 44 Year
  Sex: Male

DRUGS (4)
  1. HYDROXYUREA [Suspect]
     Indication: PSORIASIS
     Route: 048
     Dates: start: 20030101, end: 20040318
  2. DOXEPIN HCL [Concomitant]
     Indication: DEPRESSION
     Route: 048
  3. ACITRETIN [Concomitant]
     Indication: PSORIASIS
     Route: 048
  4. CETIRIZINE HCL [Concomitant]
     Indication: PRURITUS
     Route: 048

REACTIONS (2)
  - CELLULITIS [None]
  - WHITE BLOOD CELL COUNT DECREASED [None]
